FAERS Safety Report 24410264 (Version 2)
Quarter: 2024Q4

REPORT INFORMATION
  Report Type: Spontaneous
  Country: US (occurrence: US)
  Receive Date: 20241008
  Receipt Date: 20241025
  Transmission Date: 20250115
  Serious: No
  Sender: ROCHE
  Company Number: US-ROCHE-10000100017

PATIENT
  Age: 41 Year
  Sex: Female
  Weight: 107.5 kg

DRUGS (1)
  1. OCREVUS [Suspect]
     Active Substance: OCRELIZUMAB
     Indication: Multiple sclerosis
     Dosage: FIRST 1/2 DOSE OF OCREVUS 300 MILIGRAMS IV
     Route: 042
     Dates: start: 20240916

REACTIONS (2)
  - Pruritus [Recovered/Resolved]
  - Flushing [Unknown]

NARRATIVE: CASE EVENT DATE: 20240916
